FAERS Safety Report 5503645-0 (Version None)
Quarter: 2007Q4

REPORT INFORMATION
  Report Type: 
  Country: None (occurrence: None)
  Receive Date: 20071101
  Receipt Date: 20071023
  Transmission Date: 20080405
  Serious: Yes (Hospitalization)
  Sender: FDA-Public Use
  Company Number: PHRM2007FR02066

PATIENT
  Age: 57 Year
  Sex: Female

DRUGS (2)
  1. XYLOCAINE [Suspect]
     Indication: BACK PAIN
     Route: 058
     Dates: start: 20070523, end: 20070523
  2. VOLTAREN [Suspect]
     Indication: BACK PAIN
     Dosage: UNK, UNK
     Route: 058
     Dates: start: 20070523, end: 20070523

REACTIONS (19)
  - ARTHRALGIA [None]
  - ARTHRITIS BACTERIAL [None]
  - ARTHROPATHY [None]
  - BURSITIS [None]
  - C-REACTIVE PROTEIN INCREASED [None]
  - CULTURE URINE POSITIVE [None]
  - EPIDURITIS [None]
  - INFLAMMATION [None]
  - INTENTIONAL DRUG MISUSE [None]
  - INTERVERTEBRAL DISCITIS [None]
  - JOINT SWELLING [None]
  - NAUSEA [None]
  - OEDEMA PERIPHERAL [None]
  - PYREXIA [None]
  - RED BLOOD CELL SEDIMENTATION RATE INCREASED [None]
  - SEPTIC EMBOLUS [None]
  - SOFT TISSUE INFLAMMATION [None]
  - STAPHYLOCOCCAL INFECTION [None]
  - VERTEBRAL ABSCESS [None]
